FAERS Safety Report 22730729 (Version 2)
Quarter: 2023Q4

REPORT INFORMATION
  Report Type: Spontaneous
  Country: CN (occurrence: CN)
  Receive Date: 20230720
  Receipt Date: 20231006
  Transmission Date: 20240110
  Serious: Yes (Other)
  Sender: FDA-Public Use
  Company Number: CN-BAYER-2023A098935

PATIENT
  Age: 68 Year
  Sex: Female
  Weight: 56 kg

DRUGS (2)
  1. ULTRAVIST [Suspect]
     Active Substance: IOPROMIDE
     Indication: Angiocardiogram
     Dosage: 20 ML, ONCE
     Route: 013
     Dates: start: 20230629, end: 20230629
  2. ULTRAVIST [Suspect]
     Active Substance: IOPROMIDE
     Indication: Coronary artery disease

REACTIONS (5)
  - Contrast encephalopathy [Recovering/Resolving]
  - Incoherent [Recovered/Resolved]
  - Mental disorder [Recovering/Resolving]
  - Disorientation [Recovering/Resolving]
  - Blood pressure increased [Recovering/Resolving]

NARRATIVE: CASE EVENT DATE: 20230629
